FAERS Safety Report 6414661-9 (Version None)
Quarter: 2009Q4

REPORT INFORMATION
  Report Type: 
  Country: None (occurrence: None)
  Receive Date: 20091026
  Receipt Date: 20091021
  Transmission Date: 20100525
  Serious: Yes (Hospitalization)
  Sender: FDA-Public Use
  Company Number: US-SANOFI-SYNTHELABO-A03200904869

PATIENT
  Sex: Female

DRUGS (11)
  1. FAMOTIDINE [Concomitant]
     Indication: PEPTIC ULCER
     Dosage: UNK
     Route: 065
     Dates: end: 20090801
  2. BENADRYL [Concomitant]
     Indication: DRUG USE FOR UNKNOWN INDICATION
     Dosage: UNK
     Route: 065
  3. RED YEAST [Concomitant]
     Indication: DRUG USE FOR UNKNOWN INDICATION
     Dosage: UNK
     Route: 065
  4. LOVAZA [Concomitant]
     Indication: DRUG USE FOR UNKNOWN INDICATION
     Dosage: UNK
     Route: 065
  5. MULTI-VITAMIN [Concomitant]
     Indication: DRUG USE FOR UNKNOWN INDICATION
     Dosage: UNK
     Route: 065
  6. LIDOCAINE [Concomitant]
     Indication: PAIN
     Dosage: UNK
     Route: 065
  7. SIMVASTATIN [Concomitant]
     Indication: BLOOD CHOLESTEROL INCREASED
     Route: 065
     Dates: end: 20090801
  8. SIMVASTATIN [Concomitant]
     Route: 065
     Dates: start: 20090801
  9. LISINOPRIL [Concomitant]
     Indication: BLOOD PRESSURE ABNORMAL
     Route: 065
     Dates: end: 20090801
  10. LISINOPRIL [Concomitant]
     Route: 065
     Dates: start: 20090801
  11. PLAVIX [Suspect]
     Indication: CORONARY ARTERIAL STENT INSERTION
     Route: 048
     Dates: start: 20090512

REACTIONS (3)
  - ANGINA UNSTABLE [None]
  - DYSPNOEA [None]
  - IN-STENT CORONARY ARTERY RESTENOSIS [None]
